FAERS Safety Report 7698862-8 (Version None)
Quarter: 2011Q3

REPORT INFORMATION
  Report Type: 
  Country: None (occurrence: None)
  Receive Date: 20110819
  Receipt Date: 20110808
  Transmission Date: 20111222
  Serious: Yes (Hospitalization, Other)
  Sender: FDA-Public Use
  Company Number: PHHY2011US55526

PATIENT
  Sex: Female
  Weight: 122 kg

DRUGS (7)
  1. DICLOFENAC SODIUM [Concomitant]
     Route: 048
  2. RECLAST [Suspect]
     Indication: OSTEOPOROSIS
     Dosage: UNK
     Route: 042
     Dates: start: 20110616
  3. PROTONIX [Concomitant]
     Route: 048
  4. CETALGIN [Concomitant]
     Dosage: 40 MG, UNK
     Route: 048
  5. XYZAL [Concomitant]
     Route: 048
  6. RAYKIT [Concomitant]
     Route: 048
  7. ASPIRIN [Concomitant]
     Route: 048

REACTIONS (4)
  - HYPOTENSION [None]
  - NAUSEA [None]
  - HYPONATRAEMIA [None]
  - VOMITING [None]
